FAERS Safety Report 4962298-0 (Version None)
Quarter: 2006Q2

REPORT INFORMATION
  Report Type: 
  Country: None (occurrence: None)
  Receive Date: 20060404
  Receipt Date: 20050912
  Transmission Date: 20061013
  Serious: No
  Sender: FDA-Public Use
  Company Number: US-BRISTOL-MYERS SQUIBB COMPANY-13107537

PATIENT
  Sex: Female
  Weight: 64 kg

DRUGS (7)
  1. HYDREA [Suspect]
     Indication: CHRONIC MYELOID LEUKAEMIA
     Dates: start: 20050909
  2. GLUCOPHAGE [Concomitant]
  3. AVANDIA [Concomitant]
  4. ZOCOR [Concomitant]
  5. ATIVAN [Concomitant]
  6. DITROPAN [Concomitant]
  7. HALDOL [Concomitant]

REACTIONS (2)
  - ANOREXIA [None]
  - WEIGHT DECREASED [None]
